FAERS Safety Report 6123413-9 (Version None)
Quarter: 2009Q1

REPORT INFORMATION
  Report Type: 
  Country: None (occurrence: None)
  Receive Date: 20090318
  Receipt Date: 20090306
  Transmission Date: 20090719
  Serious: Yes (Hospitalization)
  Sender: FDA-Public Use
  Company Number: JP-EISAI MEDICAL RESEARCH-E2090-00661-SPO-JP

PATIENT
  Sex: Female

DRUGS (4)
  1. EXCEGRAN [Suspect]
     Indication: PARKINSON'S DISEASE
     Route: 048
     Dates: start: 20080627, end: 20080727
  2. GASMOTIN [Concomitant]
     Route: 048
  3. CARBIDOPA AND LEVODOPA [Concomitant]
     Route: 048
  4. LEVODOPA [Concomitant]
     Route: 048
     Dates: start: 20080701

REACTIONS (1)
  - LEUKOPENIA [None]
